FAERS Safety Report 5299367-4 (Version None)
Quarter: 2007Q2

REPORT INFORMATION
  Report Type: 
  Country: None (occurrence: None)
  Receive Date: 20070417
  Receipt Date: 20070403
  Transmission Date: 20071010
  Serious: Yes (Other)
  Sender: FDA-Public Use
  Company Number: US-ELI_LILLY_AND_COMPANY-US200704000636

PATIENT
  Age: 53 Year
  Sex: Male

DRUGS (7)
  1. STRATTERA [Suspect]
     Dosage: 10 MG, DAILY (1/D)
     Dates: start: 20050203, end: 20050206
  2. STRATTERA [Suspect]
     Dosage: 10 MG, 2/D
     Dates: start: 20050206, end: 20050208
  3. STRATTERA [Suspect]
     Dosage: 30 MG, DAILY (1/D)
     Dates: start: 20050209, end: 20050211
  4. STRATTERA [Suspect]
     Dosage: 40 MG, DAILY (1/D)
     Dates: start: 20050212, end: 20050215
  5. STRATTERA [Suspect]
     Dosage: 50 MG, DAILY (1/D)
     Dates: start: 20050216, end: 20050303
  6. STRATTERA [Suspect]
     Dosage: 30 MG, DAILY (1/D)
     Dates: start: 20050303, end: 20050310
  7. MULTI-VITAMIN [Concomitant]

REACTIONS (3)
  - ANEURYSM [None]
  - CEREBROVASCULAR ACCIDENT [None]
  - HEADACHE [None]
